FAERS Safety Report 24100753 (Version 1)
Quarter: 2024Q3

REPORT INFORMATION
  Report Type: Spontaneous
  Country: US (occurrence: US)
  Receive Date: 20240717
  Receipt Date: 20240717
  Transmission Date: 20241016
  Serious: No
  Sender: NOVO NORDISK
  Company Number: US-NOVOPROD-1224163

PATIENT
  Age: 51 Year
  Sex: Male

DRUGS (1)
  1. OZEMPIC [Suspect]
     Active Substance: SEMAGLUTIDE
     Indication: Type 2 diabetes mellitus
     Dosage: 0.5 MG
     Route: 058
     Dates: start: 20240507

REACTIONS (8)
  - Nervousness [Recovered/Resolved]
  - Blood pressure increased [Recovered/Resolved]
  - Increased appetite [Recovered/Resolved]
  - Decreased appetite [Recovered/Resolved]
  - Injection site reaction [Not Recovered/Not Resolved]
  - Product communication issue [Not Recovered/Not Resolved]
  - Product label confusion [Unknown]
  - Product use issue [Unknown]

NARRATIVE: CASE EVENT DATE: 20240507
